FAERS Safety Report 9799471 (Version 1)
Quarter: 2014Q1

REPORT INFORMATION
  Report Type: Spontaneous
  Country: US (occurrence: None)
  Receive Date: 20140103
  Receipt Date: 20140103
  Transmission Date: 20141002
  Serious: Yes (Other)
  Sender: FDA-Public Use
  Company Number: None

PATIENT
  Age: 68 Year
  Sex: Female

DRUGS (11)
  1. LEVAQUIN [Suspect]
     Indication: INFECTION
     Dates: start: 20131227, end: 20140102
  2. ASPIRIN [Concomitant]
  3. CALCIUM VIT D [Concomitant]
  4. POTASSIUM [Concomitant]
  5. AROMASIN [Concomitant]
  6. TYLENOL [Concomitant]
  7. VICODIN [Concomitant]
  8. VITAMIN B-12 [Concomitant]
  9. FLUCONAZOLE [Concomitant]
  10. GABAPENTIN [Concomitant]
  11. NEXIUM [Concomitant]

REACTIONS (1)
  - Nail discolouration [None]
